FAERS Safety Report 4975589-4 (Version None)
Quarter: 2006Q2

REPORT INFORMATION
  Report Type: 
  Country: None (occurrence: None)
  Receive Date: 20060410
  Receipt Date: 20060403
  Transmission Date: 20061013
  Serious: Yes (Other)
  Sender: FDA-Public Use
  Company Number: GXKR2006DE01884

PATIENT
  Age: 61 Year
  Sex: Male

DRUGS (1)
  1. CLARITHROMYCIN [Suspect]
     Dosage: 250 MG, ORAL
     Route: 048

REACTIONS (1)
  - SUDDEN HEARING LOSS [None]
